FAERS Safety Report 8785517 (Version 1)
Quarter: 2012Q4

REPORT INFORMATION
  Report Type: 
  Country: US (occurrence: US)
  Receive Date: 20120914
  Receipt Date: 20120914
  Transmission Date: 20130627
  Serious: Yes (Other)
  Sender: FDA-Public Use
  Company Number: US-ROXANE LABORATORIES, INC.-2012-RO-01828RO

PATIENT
  Age: 26 Year

DRUGS (1)
  1. PREDNISONE [Suspect]
     Indication: ADRENAL INSUFFICIENCY
     Dosage: 5 mg
     Route: 042
     Dates: start: 20120906, end: 20120906

REACTIONS (1)
  - Drug administration error [Unknown]
